FAERS Safety Report 23539949 (Version 1)
Quarter: 2024Q1

REPORT INFORMATION
  Report Type: Report from Study
  Country: IN (occurrence: None)
  Receive Date: 20240219
  Receipt Date: 20240219
  Transmission Date: 20240409
  Serious: Yes (Hospitalization, Other)
  Sender: FDA-Public Use
  Company Number: 2024A041112

PATIENT
  Age: 55 Year
  Sex: Male

DRUGS (3)
  1. ESOMEPRAZOLE [Suspect]
     Active Substance: ESOMEPRAZOLE
     Indication: Duodenitis
     Dosage: UNK
  2. HYDROXYCHLOROQUINE [Concomitant]
     Active Substance: HYDROXYCHLOROQUINE
     Indication: Duodenitis
     Dosage: UNK
  3. LEVOCETIRIZINE [Concomitant]
     Active Substance: LEVOCETIRIZINE
     Indication: Duodenitis
     Dosage: UNK

REACTIONS (3)
  - Subacute cutaneous lupus erythematosus [Recovering/Resolving]
  - Rash [Recovering/Resolving]
  - Erythema annulare [Recovering/Resolving]
